FAERS Safety Report 9542705 (Version 1)
Quarter: 2013Q3

REPORT INFORMATION
  Report Type: Spontaneous
  Country: US (occurrence: US)
  Receive Date: 20130923
  Receipt Date: 20130923
  Transmission Date: 20140515
  Serious: No
  Sender: FDA-Public Use
  Company Number: US-UPSHER-SMITH LABORATORIES, INC.-12003107

PATIENT
  Age: 33 Year
  Sex: Male

DRUGS (4)
  1. AMANTADINE HYDROCHLORIDE [Suspect]
     Indication: BRAIN INJURY
     Dosage: 200 MG, BID
     Route: 048
     Dates: start: 20120913
  2. RITALIN [Concomitant]
     Dosage: UNK
     Dates: start: 2012
  3. EXELON                             /01383201/ [Concomitant]
     Dosage: UNK
     Dates: start: 2012, end: 20121110
  4. UNSPECIFIED ANTIBIOTIC [Concomitant]
     Indication: BACTERIAL DISEASE CARRIER
     Dosage: UNK
     Route: 042
     Dates: start: 20120930

REACTIONS (1)
  - Vomiting [Not Recovered/Not Resolved]
